FAERS Safety Report 24902631 (Version 1)
Quarter: 2025Q1

REPORT INFORMATION
  Report Type: Spontaneous
  Country: JP (occurrence: JP)
  Receive Date: 20250130
  Receipt Date: 20250130
  Transmission Date: 20250409
  Serious: Yes (Hospitalization, Other)
  Sender: TAKEDA
  Company Number: JP-TAKEDA-2024TUS110616

PATIENT
  Age: 29 Year
  Sex: Male
  Weight: 72 kg

DRUGS (6)
  1. LIALDA [Suspect]
     Active Substance: MESALAMINE
     Indication: Colitis ulcerative
     Dosage: 4800 MILLIGRAM, QD
  2. LIALDA [Suspect]
     Active Substance: MESALAMINE
     Dosage: 4800 MILLIGRAM, QD
     Dates: start: 20180515, end: 20241016
  3. BUDESONIDE [Suspect]
     Active Substance: BUDESONIDE
     Indication: Colitis ulcerative
     Dosage: 9 GRAM, QD
     Dates: start: 20241011, end: 20241012
  4. BUDESONIDE [Suspect]
     Active Substance: BUDESONIDE
     Dosage: 9 MILLIGRAM, QD
     Dates: start: 20241015, end: 20241018
  5. BIFIDOBACTERIUM SPP. [Concomitant]
     Active Substance: BIFIDOBACTERIUM SPP.
     Indication: Colitis ulcerative
     Dosage: 2 DOSAGE FORM, QD
     Dates: start: 20180424
  6. CALONAL [Concomitant]
     Active Substance: ACETAMINOPHEN

REACTIONS (6)
  - C-reactive protein increased [Unknown]
  - Melaena [Unknown]
  - Frequent bowel movements [Unknown]
  - Mucous stools [Unknown]
  - Pyrexia [Unknown]
  - Abdominal pain [Unknown]

NARRATIVE: CASE EVENT DATE: 20240701
